FAERS Safety Report 8307460-4 (Version None)
Quarter: 2012Q2

REPORT INFORMATION
  Report Type: 
  Country: None (occurrence: None)
  Receive Date: 20120424
  Receipt Date: 20120402
  Transmission Date: 20120825
  Serious: Yes (Other)
  Sender: FDA-Public Use
  Company Number: BR-BAYER-2012-032138

PATIENT
  Age: 95 Year
  Sex: Female

DRUGS (1)
  1. CIPROFLOXACIN HCL [Suspect]
     Indication: LOCALISED INFECTION
     Dosage: 1 DF, QD
     Route: 048
     Dates: start: 20120323, end: 20120331

REACTIONS (3)
  - INSOMNIA [None]
  - IRRITABILITY [None]
  - DISORIENTATION [None]
